FAERS Safety Report 7928090-X (Version None)
Quarter: 2011Q4

REPORT INFORMATION
  Report Type: 
  Country: None (occurrence: None)
  Receive Date: 20111118
  Receipt Date: 20111110
  Transmission Date: 20120403
  Serious: Yes (Disabling)
  Sender: FDA-Public Use
  Company Number: JP-GLAXOSMITHKLINE-B0758903A

PATIENT
  Sex: Male

DRUGS (7)
  1. ALPRAZOLAM [Concomitant]
     Indication: PSYCHIATRIC SYMPTOM
     Dosage: 2.4MG PER DAY
     Route: 048
  2. MIRADOL [Concomitant]
     Indication: PSYCHIATRIC SYMPTOM
     Dosage: 300MG PER DAY
     Route: 048
  3. PAXIL [Suspect]
     Dosage: 10MG PER DAY
     Route: 048
     Dates: start: 20111018
  4. PAXIL [Suspect]
     Indication: AFFECTIVE DISORDER
     Dosage: 40MG PER DAY
     Route: 048
     Dates: start: 20110419, end: 20111017
  5. ETIZOLAM [Concomitant]
  6. LITHIUM CARBONATE [Concomitant]
     Indication: PSYCHIATRIC SYMPTOM
     Dosage: 800MG PER DAY
     Route: 048
  7. SILECE [Concomitant]
     Indication: PSYCHIATRIC SYMPTOM
     Dosage: 2MG PER DAY
     Route: 048

REACTIONS (13)
  - NEGATIVE THOUGHTS [None]
  - SOMNOLENCE [None]
  - AGITATION [None]
  - ANXIETY [None]
  - ANGER [None]
  - AGGRESSION [None]
  - IMPULSIVE BEHAVIOUR [None]
  - PERSECUTORY DELUSION [None]
  - RESTLESSNESS [None]
  - IRRITABILITY [None]
  - MANIA [None]
  - DEPRESSED MOOD [None]
  - LISTLESS [None]
